FAERS Safety Report 4357040-0 (Version None)
Quarter: 2004Q2

REPORT INFORMATION
  Report Type: 
  Country: None (occurrence: None)
  Receive Date: 20040512
  Receipt Date: 20040303
  Transmission Date: 20050107
  Serious: Yes (Congenital Anomaly)
  Sender: FDA-Public Use
  Company Number: NL-GLAXOSMITHKLINE-B0325401A

PATIENT
  Age: 1 Day
  Sex: Female

DRUGS (2)
  1. PAROXETINE HYDROCHLORIDE [Suspect]
     Dosage: 20MG UNKNOWN
  2. NO CONCURRENT MEDICATION [Concomitant]

REACTIONS (10)
  - CARDIAC MURMUR [None]
  - CYANOSIS NEONATAL [None]
  - DRUG EXPOSURE DURING PREGNANCY [None]
  - DRUG WITHDRAWAL SYNDROME NEONATAL [None]
  - HYPOGLYCAEMIA [None]
  - INTERCOSTAL RETRACTION [None]
  - NAUSEA [None]
  - RESPIRATORY DISORDER [None]
  - TREMOR [None]
  - TRUNCUS ARTERIOSUS PERSISTENT [None]
